FAERS Safety Report 11348244 (Version 1)
Quarter: 2015Q3

REPORT INFORMATION
  Report Type: Report from Study
  Country: KR (occurrence: KR)
  Receive Date: 20150806
  Receipt Date: 20150806
  Transmission Date: 20151125
  Serious: Yes (Hospitalization)
  Sender: FDA-Public Use
  Company Number: KR-OTSUKA-2015_006643

PATIENT
  Age: 82 Year
  Sex: Male

DRUGS (15)
  1. LORELCO [Suspect]
     Active Substance: PROBUCOL
     Dosage: 250 MG, BID
     Route: 048
     Dates: end: 20150731
  2. BLINDED CILOSTAZOL [Suspect]
     Active Substance: CILOSTAZOL
     Indication: CEREBRAL INFARCTION
     Dosage: UNK
     Route: 048
     Dates: start: 20110609
  3. BLINDED *ASPIRIN [Suspect]
     Active Substance: ASPIRIN
     Indication: CEREBRAL INFARCTION
     Dosage: UNK
     Route: 048
     Dates: start: 20110609
  4. AMOSARTAN [Concomitant]
     Indication: HYPERTENSION
     Dosage: UNK
     Route: 065
     Dates: start: 20110705
  5. CENTRUM [Concomitant]
     Active Substance: VITAMINS
     Indication: CEREBRAL INFARCTION
     Dosage: UNK
     Route: 065
     Dates: start: 20110604
  6. BLINDED PROBUCOL [Suspect]
     Active Substance: PROBUCOL
     Indication: CEREBRAL INFARCTION
     Dosage: UNK
     Route: 048
     Dates: start: 20110609
  7. BLINDED *ASPIRIN [Suspect]
     Active Substance: ASPIRIN
     Dosage: UNK
     Route: 048
     Dates: end: 20150731
  8. BLINDED CILOSTAZOL [Suspect]
     Active Substance: CILOSTAZOL
     Dosage: UNK
     Route: 048
     Dates: end: 20150731
  9. BLINDED *PLACEBO [Suspect]
     Active Substance: UNSPECIFIED INGREDIENT
     Indication: CEREBRAL INFARCTION
     Dosage: UNK
     Route: 048
     Dates: start: 20110609
  10. DILATREND [Concomitant]
     Active Substance: CARVEDILOL
     Indication: HYPERTENSION
     Dosage: UNK
     Route: 065
     Dates: start: 20120412
  11. GLIATILIN [Concomitant]
     Active Substance: CHOLINE ALFOSCERATE
     Indication: CEREBRAL INFARCTION
     Dosage: UNK
     Route: 065
     Dates: start: 20110705
  12. BLINDED *PLACEBO [Suspect]
     Active Substance: UNSPECIFIED INGREDIENT
     Dosage: UNK
     Route: 048
     Dates: end: 20150731
  13. LORELCO [Suspect]
     Active Substance: PROBUCOL
     Indication: CEREBRAL INFARCTION
     Dosage: 250 MG, BID
     Route: 048
     Dates: start: 20110609
  14. LIPITOR [Concomitant]
     Active Substance: ATORVASTATIN CALCIUM
     Indication: HYPERLIPIDAEMIA
     Dosage: UNK
     Route: 065
     Dates: start: 20110601
  15. BLINDED PROBUCOL [Suspect]
     Active Substance: PROBUCOL
     Dosage: UNK
     Route: 048
     Dates: end: 20150731

REACTIONS (3)
  - Sepsis [Recovered/Resolved]
  - Haematuria [Recovered/Resolved]
  - Diarrhoea [Recovered/Resolved]

NARRATIVE: CASE EVENT DATE: 2015
